FAERS Safety Report 5354794-1 (Version None)
Quarter: 2007Q2

REPORT INFORMATION
  Report Type: 
  Country: None (occurrence: None)
  Receive Date: 20070611
  Receipt Date: 20070530
  Transmission Date: 20071010
  Serious: Yes (Death, Other)
  Sender: FDA-Public Use
  Company Number: 2006-02466

PATIENT
  Age: 62 Year
  Sex: Female

DRUGS (2)
  1. VELCADE [Suspect]
     Indication: LEUKAEMIA PLASMACYTIC
     Dosage: 1.30 MG/M2; INTRAVENOUS
     Route: 042
     Dates: start: 20040801
  2. DEXAMETHASONE 0.5MG TAB [Concomitant]

REACTIONS (8)
  - BLOOD CALCIUM DECREASED [None]
  - BLOOD CREATININE INCREASED [None]
  - BLOOD LACTATE DEHYDROGENASE INCREASED [None]
  - BLOOD PHOSPHORUS INCREASED [None]
  - BLOOD UREA INCREASED [None]
  - RESPIRATORY TRACT INFECTION [None]
  - STATUS EPILEPTICUS [None]
  - TUMOUR LYSIS SYNDROME [None]
